FAERS Safety Report 17909316 (Version 4)
Quarter: 2021Q2

REPORT INFORMATION
  Report Type: Report from Study
  Country: None (occurrence: US)
  Receive Date: 20200618
  Receipt Date: 20210406
  Transmission Date: 20210717
  Serious: Yes (Other)
  Sender: FDA-Public Use
  Company Number: US-ABBVIE-20K-163-3442741-00

PATIENT
  Age: 70 Year
  Sex: Female
  Weight: 61.29 kg

DRUGS (9)
  1. CIPROFLOXACIN. [Concomitant]
     Active Substance: CIPROFLOXACIN
     Indication: PRODUCT USED FOR UNKNOWN INDICATION
  2. BUDESONIDE. [Concomitant]
     Active Substance: BUDESONIDE
     Indication: COLITIS ULCERATIVE
     Dates: start: 2015
  3. HUMIRA [Suspect]
     Active Substance: ADALIMUMAB
     Route: 058
  4. HUMIRA [Suspect]
     Active Substance: ADALIMUMAB
     Route: 058
  5. FLAGYL [Suspect]
     Active Substance: METRONIDAZOLE\METRONIDAZOLE HYDROCHLORIDE
     Indication: PRODUCT USED FOR UNKNOWN INDICATION
     Route: 065
  6. MESALAMINE. [Concomitant]
     Active Substance: MESALAMINE
     Indication: COLITIS ULCERATIVE
     Dates: start: 2015
  7. LIOTHYRONINE [Concomitant]
     Active Substance: LIOTHYRONINE
     Indication: THYROID DISORDER
     Dates: start: 2000
  8. HUMIRA [Suspect]
     Active Substance: ADALIMUMAB
     Indication: COLITIS ULCERATIVE
     Route: 058
     Dates: start: 20200514
  9. LEVOTHYROXIN [Concomitant]
     Active Substance: LEVOTHYROXINE
     Indication: THYROID DISORDER
     Dates: start: 2000

REACTIONS (39)
  - Blood albumin decreased [Unknown]
  - Blood glucose increased [Unknown]
  - Blood calcium decreased [Unknown]
  - Lymphocyte count decreased [Unknown]
  - Heart rate increased [Unknown]
  - Campylobacter infection [Recovered/Resolved]
  - Therapeutic product effect incomplete [Not Recovered/Not Resolved]
  - Eosinophil count decreased [Unknown]
  - Blood chloride decreased [Unknown]
  - Fall [Unknown]
  - Inflammation [Not Recovered/Not Resolved]
  - Platelet count decreased [Unknown]
  - Colitis ulcerative [Not Recovered/Not Resolved]
  - Gingival discomfort [Recovered/Resolved]
  - Weight decreased [Unknown]
  - Faeces discoloured [Not Recovered/Not Resolved]
  - Visual impairment [Recovered/Resolved]
  - Hallucination [Recovered/Resolved]
  - Gingival discomfort [Recovered/Resolved]
  - Anosmia [Recovered/Resolved]
  - Chills [Unknown]
  - Hyperhidrosis [Unknown]
  - Blood sodium decreased [Unknown]
  - Illness [Unknown]
  - Anorectal discomfort [Not Recovered/Not Resolved]
  - White blood cell count decreased [Unknown]
  - Loss of consciousness [Recovered/Resolved]
  - Asthenia [Recovered/Resolved]
  - Product storage error [Unknown]
  - Fatigue [Recovered/Resolved]
  - Increased tendency to bruise [Unknown]
  - Ageusia [Recovered/Resolved]
  - Pain [Unknown]
  - Obesity [Recovered/Resolved]
  - Product complaint [Unknown]
  - Dizziness [Unknown]
  - Protein total decreased [Unknown]
  - Hypotension [Unknown]
  - Adverse food reaction [Unknown]

NARRATIVE: CASE EVENT DATE: 2020
